FAERS Safety Report 8364278-4 (Version None)
Quarter: 2012Q2

REPORT INFORMATION
  Report Type: 
  Country: None (occurrence: None)
  Receive Date: 20120516
  Receipt Date: 20120508
  Transmission Date: 20120825
  Serious: Yes (Other)
  Sender: FDA-Public Use
  Company Number: US-ACTELION-A-US2012-65512

PATIENT

DRUGS (4)
  1. TRACLEER [Suspect]
     Indication: PULMONARY ARTERIAL HYPERTENSION
     Dosage: UNK
     Route: 048
     Dates: start: 20090514
  2. ADCIRCA [Concomitant]
  3. COUMADIN [Concomitant]
  4. VENTAVIS [Concomitant]
     Indication: PULMONARY ARTERIAL HYPERTENSION
     Dosage: 20
     Route: 055

REACTIONS (3)
  - BACK PAIN [None]
  - DYSPNOEA [None]
  - LUMBAR VERTEBRAL FRACTURE [None]
